FAERS Safety Report 19426586 (Version 1)
Quarter: 2021Q2

REPORT INFORMATION
  Report Type: Spontaneous
  Country: PL (occurrence: PL)
  Receive Date: 20210616
  Receipt Date: 20210616
  Transmission Date: 20210717
  Serious: Yes (Hospitalization, Other)
  Sender: FDA-Public Use
  Company Number: PL-PFIZER INC-2021661872

PATIENT
  Age: 79 Year
  Sex: Male
  Weight: 103.3 kg

DRUGS (14)
  1. PERINDOPRIL [Suspect]
     Active Substance: PERINDOPRIL
     Dosage: 10 MG (IN THE EVENING)
     Route: 065
  2. TAMSULOSIN [Suspect]
     Active Substance: TAMSULOSIN
     Dosage: 0.4 MG (IN THE MORNING)
     Route: 065
  3. METFORMIN [Suspect]
     Active Substance: METFORMIN HYDROCHLORIDE
     Dosage: 1500 MG DAILY (500 MG, THREE TIMES A DAY)
     Route: 065
  4. EPLERENONE. [Suspect]
     Active Substance: EPLERENONE
     Dosage: 25 MG (IN THE MORNING)
  5. FORMOTEROL [Suspect]
     Active Substance: FORMOTEROL
     Dosage: 24 UG DAILY (12 UG, TWICE A DAY (1 INHALATION))
     Route: 055
  6. TRIMETAZIDINE [Suspect]
     Active Substance: TRIMETAZIDINE
     Dosage: 20 MG (IN THE MORNING AND EVENING)
     Route: 065
  7. BISOPROLOL [Suspect]
     Active Substance: BISOPROLOL
     Dosage: 5 MG DAILY (IN THE MORNING)
  8. LERCANIDIPINE [Suspect]
     Active Substance: LERCANIDIPINE
     Dosage: 20 MG (IN THE MORNING)
     Route: 065
  9. GLICLAZIDE [Suspect]
     Active Substance: GLICLAZIDE
     Dosage: 60 MG (IN THE MORNING)
     Route: 065
  10. ACENOCUMAROL [Suspect]
     Active Substance: ACENOCOUMAROL
     Dosage: 3 MG, DAILY
     Route: 065
  11. FINASTERIDE. [Suspect]
     Active Substance: FINASTERIDE
     Dosage: 5 MG (IN THE MORNING)
     Route: 065
  12. ATORVASTATIN CALCIUM. [Suspect]
     Active Substance: ATORVASTATIN CALCIUM
     Dosage: 20 MG (IN THE EVENING)
  13. TORASEMIDE [Suspect]
     Active Substance: TORSEMIDE
     Dosage: 20 MG (IN THE MORNING)
     Route: 065
  14. MILURIT [Suspect]
     Active Substance: ALLOPURINOL
     Dosage: 300 MG (IN THE MORNING)
     Route: 065

REACTIONS (16)
  - Splenomegaly [Unknown]
  - Liver palpable [Unknown]
  - Ejection fraction decreased [Unknown]
  - Pleural effusion [Unknown]
  - Cardiac failure chronic [Unknown]
  - Coronary artery stenosis [Unknown]
  - Ventricular enlargement [Unknown]
  - Oedema peripheral [Unknown]
  - Cardiac murmur [Unknown]
  - Inferior vena cava dilatation [Unknown]
  - Renal cyst [Unknown]
  - Rales [Unknown]
  - Hepatic vein dilatation [Unknown]
  - Dyspnoea at rest [Unknown]
  - Atrial enlargement [Unknown]
  - Heart rate irregular [Unknown]
